FAERS Safety Report 22250892 (Version 1)
Quarter: 2023Q2

REPORT INFORMATION
  Report Type: Spontaneous
  Country: US (occurrence: US)
  Receive Date: 20230425
  Receipt Date: 20230425
  Transmission Date: 20230721
  Serious: No
  Sender: FDA-Public Use
  Company Number: US-ANIPHARMA-2023-US-008290

PATIENT
  Age: 60 Year
  Sex: Male

DRUGS (1)
  1. MIGLUSTAT [Suspect]
     Active Substance: MIGLUSTAT
     Indication: Enzyme abnormality
     Dosage: UNKNOWN
     Route: 065

REACTIONS (1)
  - Chitotriosidase increased [Recovered/Resolved]
